FAERS Safety Report 6268499-6 (Version None)
Quarter: 2009Q3

REPORT INFORMATION
  Report Type: 
  Country: None (occurrence: None)
  Receive Date: 20090715
  Receipt Date: 20090713
  Transmission Date: 20100115
  Serious: Yes (Death)
  Sender: FDA-Public Use
  Company Number: FR-TEVA-197253ISR

PATIENT
  Age: 81 Year
  Sex: Female

DRUGS (2)
  1. AMOXICILLIN AND CLAVULANATE POTASSIUM [Suspect]
     Indication: BRONCHOPNEUMONIA
     Dosage: 875 + 125 MG
     Route: 042
  2. CEFEPIME [Suspect]
     Indication: BRONCHOPNEUMONIA
     Route: 042

REACTIONS (2)
  - RENAL FAILURE ACUTE [None]
  - STATUS EPILEPTICUS [None]
